FAERS Safety Report 17187848 (Version 3)
Quarter: 2019Q4

REPORT INFORMATION
  Report Type: Spontaneous
  Country: IT (occurrence: IT)
  Receive Date: 20191221
  Receipt Date: 20191230
  Transmission Date: 20200122
  Serious: Yes (Hospitalization, Other)
  Sender: FDA-Public Use
  Company Number: IT-AUROBINDO-AUR-APL-2019-106392

PATIENT
  Age: 55 Year
  Sex: Female

DRUGS (23)
  1. DOXORUBICIN [Suspect]
     Active Substance: DOXORUBICIN
     Indication: METASTASES TO BONE
  2. CEFTRIAXONE. [Concomitant]
     Active Substance: CEFTRIAXONE
     Indication: INFECTION
     Dosage: UNK
     Route: 042
  3. DOXORUBICIN [Suspect]
     Active Substance: DOXORUBICIN
     Indication: METASTASIS
     Dosage: UNK, CYCLICAL
     Route: 065
     Dates: start: 201703
  4. LEVOFLOXACIN. [Concomitant]
     Active Substance: LEVOFLOXACIN
     Indication: DEVICE RELATED INFECTION
     Dosage: UNK
     Route: 042
  5. DOXORUBICIN [Suspect]
     Active Substance: DOXORUBICIN
     Indication: METASTASES TO LIVER
  6. CISPLATIN. [Suspect]
     Active Substance: CISPLATIN
     Indication: METASTASES TO LUNG
  7. ETOPOSIDE. [Suspect]
     Active Substance: ETOPOSIDE
     Indication: METASTASIS
     Dosage: UNK
     Route: 065
     Dates: start: 201703
  8. ETOPOSIDE. [Suspect]
     Active Substance: ETOPOSIDE
     Indication: METASTASES TO LIVER
  9. ETOPOSIDE. [Suspect]
     Active Substance: ETOPOSIDE
     Indication: METASTASES TO BONE
  10. MITOTANE [Suspect]
     Active Substance: MITOTANE
     Indication: METASTASES TO BONE
  11. CISPLATIN. [Suspect]
     Active Substance: CISPLATIN
     Indication: METASTASES TO LIVER
  12. MITOTANE [Suspect]
     Active Substance: MITOTANE
     Indication: ADRENOCORTICAL CARCINOMA
     Dosage: UNK, CYCLICAL
     Route: 065
     Dates: start: 201701
  13. DOXORUBICIN [Suspect]
     Active Substance: DOXORUBICIN
     Indication: ADRENOCORTICAL CARCINOMA
  14. CIPROFLOXACIN. [Suspect]
     Active Substance: CIPROFLOXACIN
     Indication: DEVICE RELATED INFECTION
     Dosage: UNK
     Route: 042
  15. CISPLATIN. [Suspect]
     Active Substance: CISPLATIN
     Indication: METASTASES TO BONE
  16. ETOPOSIDE. [Suspect]
     Active Substance: ETOPOSIDE
     Indication: METASTASES TO LUNG
  17. MITOTANE [Suspect]
     Active Substance: MITOTANE
     Indication: METASTASES TO LUNG
     Dosage: UNK, CYCLICAL
     Route: 065
     Dates: start: 201703
  18. CIPROFLOXACIN. [Suspect]
     Active Substance: CIPROFLOXACIN
     Indication: BACTERIAL INFECTION
     Dosage: UNK
     Route: 065
     Dates: start: 2017, end: 2017
  19. DOXORUBICIN [Suspect]
     Active Substance: DOXORUBICIN
     Indication: METASTASES TO LUNG
  20. CISPLATIN. [Suspect]
     Active Substance: CISPLATIN
     Indication: METASTASIS
     Dosage: UNK, CYCLICAL
     Route: 065
     Dates: start: 201703
  21. CISPLATIN. [Suspect]
     Active Substance: CISPLATIN
     Indication: ADRENOCORTICAL CARCINOMA
  22. ETOPOSIDE. [Suspect]
     Active Substance: ETOPOSIDE
     Indication: ADRENOCORTICAL CARCINOMA
  23. MITOTANE [Suspect]
     Active Substance: MITOTANE
     Indication: METASTASES TO LIVER

REACTIONS (4)
  - Device related infection [Recovered/Resolved]
  - Infusion site reaction [Recovered/Resolved]
  - Pyrexia [Recovered/Resolved]
  - Bacteraemia [Recovered/Resolved]

NARRATIVE: CASE EVENT DATE: 2017
